FAERS Safety Report 6023574-6 (Version None)
Quarter: 2008Q4

REPORT INFORMATION
  Report Type: 
  Country: None (occurrence: None)
  Receive Date: 20081223
  Receipt Date: 20081209
  Transmission Date: 20090506
  Serious: Yes (Hospitalization)
  Sender: FDA-Public Use
  Company Number: 1000003227

PATIENT
  Age: 76 Year
  Sex: Male

DRUGS (5)
  1. ESCITALOPRAM [Suspect]
     Dosage: 10 MG (10 MG, 1 IN 1 D), ORAL
     Route: 048
     Dates: start: 20080501, end: 20080602
  2. BIPRETERAX [Suspect]
     Dates: start: 20080501, end: 20080602
  3. ASPEGIC 325 [Concomitant]
  4. PRAZEPAM [Concomitant]
  5. FORTIMEL [Concomitant]

REACTIONS (8)
  - ASTHENIA [None]
  - BRADYPHRENIA [None]
  - DYSSTASIA [None]
  - GENERAL PHYSICAL HEALTH DETERIORATION [None]
  - HYPOCHLORAEMIA [None]
  - HYPOKALAEMIA [None]
  - HYPONATRAEMIA [None]
  - SOMNOLENCE [None]
